FAERS Safety Report 12330596 (Version 1)
Quarter: 2016Q2

REPORT INFORMATION
  Report Type: Spontaneous
  Country: US (occurrence: None)
  Receive Date: 20160503
  Receipt Date: 20160503
  Transmission Date: 20160815
  Serious: Yes (Other)
  Sender: FDA-Public Use
  Company Number: None

PATIENT
  Age: 47 Year
  Sex: Female
  Weight: 78.47 kg

DRUGS (1)
  1. ALPRAZOLAM, 0.25MG TID SANDOS [Suspect]
     Active Substance: ALPRAZOLAM
     Indication: ANXIETY
     Route: 048

REACTIONS (2)
  - Product quality issue [None]
  - Drug screen negative [None]

NARRATIVE: CASE EVENT DATE: 20160222
